FAERS Safety Report 4467150-5 (Version None)
Quarter: 2004Q4

REPORT INFORMATION
  Report Type: 
  Country: None (occurrence: None)
  Receive Date: 20041004
  Receipt Date: 20041004
  Transmission Date: 20050328
  Serious: Yes (Life-Threatening, Hospitalization)
  Sender: FDA-Public Use
  Company Number: None

PATIENT
  Age: 61 Year
  Sex: Male
  Weight: 86 kg

DRUGS (10)
  1. CISPLATIN [Suspect]
     Dosage: 197 MG IV
     Route: 042
     Dates: start: 20040907
  2. OXYCODONE HCL [Concomitant]
  3. LIPITOR [Concomitant]
  4. ZETIA [Concomitant]
  5. HYDROCHLOROTHIAZIDE [Concomitant]
  6. FAMVIR [Concomitant]
  7. ADVIL [Concomitant]
  8. ALPRAZOLAM [Concomitant]
  9. RESTORIL [Concomitant]
  10. SENOKOT [Concomitant]

REACTIONS (6)
  - COMA [None]
  - FEBRILE NEUTROPENIA [None]
  - HYPOXIA [None]
  - PLEURAL EFFUSION [None]
  - PULMONARY VASCULAR DISORDER [None]
  - SEDATION [None]
